FAERS Safety Report 5978621-4 (Version None)
Quarter: 2008Q4

REPORT INFORMATION
  Report Type: 
  Country: None (occurrence: None)
  Receive Date: 20081204
  Receipt Date: 20080808
  Transmission Date: 20090506
  Serious: No
  Sender: FDA-Public Use
  Company Number: US-BAYER-200814529BCC

PATIENT
  Age: 2 Year
  Weight: 12 kg

DRUGS (1)
  1. ALEVE [Suspect]

REACTIONS (1)
  - NO ADVERSE EVENT [None]
